FAERS Safety Report 5646510-0 (Version None)
Quarter: 2008Q1

REPORT INFORMATION
  Report Type: 
  Country: None (occurrence: None)
  Receive Date: 20080227
  Receipt Date: 20080215
  Transmission Date: 20080703
  Serious: Yes (Hospitalization)
  Sender: FDA-Public Use
  Company Number: CIP08000267

PATIENT
  Sex: Female

DRUGS (3)
  1. RISEDRONATE SODIUM [Suspect]
     Indication: OSTEOPOROSIS
     Dosage: 17.5 MG, 1/WEEK, ORAL
     Route: 048
     Dates: start: 20071001
  2. CORTICOTROPIN [Suspect]
  3. ELCITONIN (ELCATONIN) [Concomitant]

REACTIONS (2)
  - PULPITIS DENTAL [None]
  - PURULENCE [None]
